FAERS Safety Report 5153358-2 (Version None)
Quarter: 2006Q4

REPORT INFORMATION
  Report Type: 
  Country: None (occurrence: None)
  Receive Date: 20061117
  Receipt Date: 20061108
  Transmission Date: 20070319
  Serious: Yes (Other)
  Sender: FDA-Public Use
  Company Number: US-JNJFOC-20061102415

PATIENT
  Sex: Female
  Weight: 28.58 kg

DRUGS (5)
  1. CONCERTA [Suspect]
     Route: 048
  2. CONCERTA [Suspect]
     Indication: ATTENTION DEFICIT/HYPERACTIVITY DISORDER
     Route: 048
  3. DEXTROMETHORPHAN HYDROBROMIDE [Concomitant]
     Indication: EAR PAIN
  4. PHENYLEPHRINE [Concomitant]
     Indication: EAR PAIN
  5. PYRILAMINE [Concomitant]
     Indication: EAR PAIN

REACTIONS (1)
  - MUSCLE TWITCHING [None]
